FAERS Safety Report 17102925 (Version 1)
Quarter: 2019Q4

REPORT INFORMATION
  Report Type: Spontaneous
  Country: US (occurrence: US)
  Receive Date: 20191106
  Receipt Date: 20191106
  Transmission Date: 20200122
  Serious: No
  Sender: FDA-Public Use
  Company Number: None

PATIENT
  Age: 50 Year
  Sex: Male

DRUGS (1)
  1. TRIUMEQ [Suspect]
     Active Substance: ABACAVIR SULFATE\DOLUTEGRAVIR SODIUM\LAMIVUDINE
     Dosage: ?          OTHER DOSE:600/50/300MG;?
     Route: 048
     Dates: start: 201512

REACTIONS (3)
  - Therapy cessation [None]
  - Manufacturing product shipping issue [None]
  - Disease progression [None]

NARRATIVE: CASE EVENT DATE: 20191106
